FAERS Safety Report 8718505 (Version 3)
Quarter: 2013Q3

REPORT INFORMATION
  Report Type: Spontaneous
  Country: US (occurrence: US)
  Receive Date: 20120810
  Receipt Date: 20130905
  Transmission Date: 20140515
  Serious: No
  Sender: FDA-Public Use
  Company Number: US-ASTRAZENECA-2012SE53441

PATIENT
  Age: 62 Year
  Sex: Male
  Weight: 131.5 kg

DRUGS (20)
  1. SEROQUEL [Suspect]
     Indication: DEPRESSION
     Route: 048
     Dates: start: 1998, end: 201307
  2. SEROQUEL [Suspect]
     Indication: SLEEP DISORDER
     Route: 048
     Dates: start: 1998, end: 201307
  3. SEROQUEL [Suspect]
     Indication: INSOMNIA
     Route: 048
     Dates: start: 1998, end: 201307
  4. SEROQUEL [Suspect]
     Indication: TINNITUS
     Route: 048
     Dates: start: 1998, end: 201307
  5. SEROQUEL [Suspect]
     Indication: DEPRESSION
     Route: 048
  6. SEROQUEL [Suspect]
     Indication: SLEEP DISORDER
     Route: 048
  7. SEROQUEL [Suspect]
     Indication: INSOMNIA
     Route: 048
  8. SEROQUEL [Suspect]
     Indication: TINNITUS
     Route: 048
  9. SEROQUEL [Suspect]
     Indication: DEPRESSION
     Route: 048
  10. SEROQUEL [Suspect]
     Indication: SLEEP DISORDER
     Route: 048
  11. SEROQUEL [Suspect]
     Indication: INSOMNIA
     Route: 048
  12. SEROQUEL [Suspect]
     Indication: TINNITUS
     Route: 048
  13. SEROQUEL [Suspect]
     Indication: DEPRESSION
     Route: 048
  14. SEROQUEL [Suspect]
     Indication: SLEEP DISORDER
     Route: 048
  15. SEROQUEL [Suspect]
     Indication: INSOMNIA
     Route: 048
  16. SEROQUEL [Suspect]
     Indication: TINNITUS
     Route: 048
  17. SEROQUEL [Suspect]
     Indication: DEPRESSION
     Dosage: 50 HID
     Route: 048
     Dates: start: 20060101, end: 20130701
  18. SEROQUEL [Suspect]
     Indication: SLEEP DISORDER
     Dosage: 50 HID
     Route: 048
     Dates: start: 20060101, end: 20130701
  19. SEROQUEL [Suspect]
     Indication: INSOMNIA
     Dosage: 50 HID
     Route: 048
     Dates: start: 20060101, end: 20130701
  20. SEROQUEL [Suspect]
     Indication: TINNITUS
     Dosage: 50 HID
     Route: 048
     Dates: start: 20060101, end: 20130701

REACTIONS (12)
  - Feeling abnormal [Unknown]
  - Malaise [Unknown]
  - Nasopharyngitis [Unknown]
  - Increased bronchial secretion [Unknown]
  - Adverse event [Unknown]
  - Insomnia [Not Recovered/Not Resolved]
  - Tinnitus [Unknown]
  - Irritability [Not Recovered/Not Resolved]
  - Intentional drug misuse [Unknown]
  - Off label use [Unknown]
  - Drug dose omission [Unknown]
  - Intentional drug misuse [Recovered/Resolved]
